FAERS Safety Report 5884082-6 (Version None)
Quarter: 2008Q3

REPORT INFORMATION
  Report Type: 
  Country: None (occurrence: None)
  Receive Date: 20080910
  Receipt Date: 20080903
  Transmission Date: 20090109
  Serious: Yes (Hospitalization)
  Sender: FDA-Public Use
  Company Number: TCI2008A04245

PATIENT
  Age: 72 Year
  Sex: Female

DRUGS (4)
  1. TAKEPRON OD TABLETS 30 (LANSOPRAZOLE) [Suspect]
     Indication: PROPHYLAXIS AGAINST GASTROINTESTINAL ULCER
     Dosage: 30 MG (30 MG, 1 IN 1 D) PER ORAL
     Route: 048
     Dates: start: 20080715, end: 20080724
  2. NEORAL [Suspect]
     Dosage: PER ORAL
     Route: 048
     Dates: start: 20080709, end: 20080807
  3. PREDNISOLONE [Concomitant]
  4. DOGMATYL         (SULPIRIDE) (PREPARATION FOR ORAL USE (NOS)) [Concomitant]

REACTIONS (3)
  - BONE MARROW FAILURE [None]
  - DECREASED APPETITE [None]
  - LIVER DISORDER [None]
